FAERS Safety Report 12779782 (Version 2)
Quarter: 2016Q3

REPORT INFORMATION
  Report Type: Spontaneous
  Country: IN (occurrence: IN)
  Receive Date: 20160926
  Receipt Date: 20160929
  Transmission Date: 20161109
  Serious: Yes (Other)
  Sender: FDA-Public Use
  Company Number: IN-CIPLA LTD.-2016IN18803

PATIENT

DRUGS (4)
  1. ANASTROZOLE. [Suspect]
     Active Substance: ANASTROZOLE
     Indication: INVASIVE DUCTAL BREAST CARCINOMA
     Dosage: 1 MG, QD
     Route: 048
  2. CALCIUM [Concomitant]
     Active Substance: CALCIUM
     Dosage: 500 MG ONCE A DAY FOR THE PAST 3 MONTHS
     Route: 048
  3. CYCLOPHOSPHAMIDE. [Suspect]
     Active Substance: CYCLOPHOSPHAMIDE
     Indication: INVASIVE DUCTAL BREAST CARCINOMA
     Dosage: 1 G, QD, 4 CYCLES, FOR CONSECUTIVE 21 DAYS, EC REGIMEN
     Route: 065
  4. EPIRUBICIN [Suspect]
     Active Substance: EPIRUBICIN
     Indication: INVASIVE DUCTAL BREAST CARCINOMA
     Dosage: 16 MG, QD, 4 CYCLES, FOR CONSECUTIVE 21 DAYS, EC REGIMEN
     Route: 065

REACTIONS (5)
  - Diabetes mellitus inadequate control [Recovered/Resolved]
  - Pyrexia [Unknown]
  - Productive cough [Unknown]
  - Back pain [Unknown]
  - Vomiting [Unknown]
